FAERS Safety Report 4269998-9 (Version None)
Quarter: 2004Q1

REPORT INFORMATION
  Report Type: 
  Country: None (occurrence: None)
  Receive Date: 20040113
  Receipt Date: 20040113
  Transmission Date: 20041129
  Serious: Yes (Hospitalization)
  Sender: FDA-Public Use
  Company Number: None

PATIENT
  Age: 75 Year
  Sex: Male

DRUGS (7)
  1. FELODIPINE [Suspect]
     Indication: HYPERTENSION
     Dates: start: 20020701
  2. FUROSEMIDE [Suspect]
     Dates: start: 20030501
  3. FESO4 [Concomitant]
  4. METOPROLOL [Concomitant]
  5. ISOSORBIDE [Concomitant]
  6. DONEPEZIL HCL [Concomitant]
  7. ACIPHEX [Concomitant]

REACTIONS (1)
  - SYNCOPE [None]
